FAERS Safety Report 7743358 (Version 3)
Quarter: 2013Q4

REPORT INFORMATION
  Report Type: Spontaneous
  Country: NL (occurrence: NL)
  Receive Date: 20101229
  Receipt Date: 20131021
  Transmission Date: 20140711
  Serious: Yes (Other)
  Sender: FDA-Public Use
  Company Number: NL-TEVA-261010ISR

PATIENT
  Age: 80 Year
  Sex: Female

DRUGS (2)
  1. PHENPROCOUMON [Suspect]
     Indication: ATRIAL FIBRILLATION
  2. MICONAZOLE [Interacting]
     Indication: FUNGAL INFECTION
     Dosage: 20MG/G
     Route: 061

REACTIONS (3)
  - Coagulation test abnormal [Recovering/Resolving]
  - Drug interaction [Recovering/Resolving]
  - International normalised ratio increased [Recovered/Resolved]
